FAERS Safety Report 20548122 (Version 2)
Quarter: 2022Q1

REPORT INFORMATION
  Report Type: Spontaneous
  Country: RU (occurrence: RU)
  Receive Date: 20220303
  Receipt Date: 20220315
  Transmission Date: 20220423
  Serious: Yes (Other)
  Sender: FDA-Public Use
  Company Number: RU-MLMSERVICE-20220217-3383141-1

PATIENT
  Age: 58 Year
  Sex: Female

DRUGS (10)
  1. METHOTREXATE SODIUM [Suspect]
     Active Substance: METHOTREXATE SODIUM
     Indication: Ovarian germ cell choriocarcinoma
     Dosage: 500 MG/M2, 5 CYCLIC(EMA-CO)
     Route: 042
     Dates: start: 202003, end: 202007
  2. ETOPOSIDE [Suspect]
     Active Substance: ETOPOSIDE
     Indication: Ovarian germ cell choriocarcinoma
     Dosage: 500 MG/M2, 5 CYCLIC(EMA-CO)
     Route: 042
     Dates: start: 202003, end: 202007
  3. BLEOMYCIN [Suspect]
     Active Substance: BLEOMYCIN SULFATE
     Indication: Ovarian germ cell choriocarcinoma
     Dosage: 60 MG, 2 CYCLIC(BEP)
     Dates: start: 201912, end: 202002
  4. ETOPOSIDE [Suspect]
     Active Substance: ETOPOSIDE
     Indication: Ovarian germ cell choriocarcinoma
     Dosage: 200 MG/M2, 2 CYCLIC(BEP)
     Dates: start: 201912, end: 202002
  5. CISPLATIN [Suspect]
     Active Substance: CISPLATIN
     Indication: Ovarian germ cell choriocarcinoma
     Dosage: 40 MG/M2, 2 CYCLIC(BEP)
     Dates: start: 201912, end: 202002
  6. VINCRISTINE [Suspect]
     Active Substance: VINCRISTINE
     Indication: Ovarian germ cell choriocarcinoma
     Dosage: 5 MG/M2, 5 CYCLIC(EMA-CO)
     Route: 042
     Dates: start: 202003, end: 202007
  7. CYCLOPHOSPHAMIDE [Suspect]
     Active Substance: CYCLOPHOSPHAMIDE
     Indication: Ovarian germ cell choriocarcinoma
     Dosage: 3000 MG/M2, 5 CYCLIC(EMA-CO)
     Route: 042
     Dates: start: 202003, end: 202007
  8. DACTINOMYCIN [Suspect]
     Active Substance: DACTINOMYCIN
     Indication: Ovarian germ cell choriocarcinoma
     Dosage: UNK, 5 CYCLIC(EMA-CO)
     Route: 042
     Dates: start: 202003, end: 202007
  9. GRANULOCYTE COLONY-STIMULATING FACTOR NOS [Concomitant]
     Active Substance: GRANULOCYTE COLONY-STIMULATING FACTOR NOS
     Dosage: UNK
  10. LEUCOVORIN [Concomitant]
     Active Substance: LEUCOVORIN
     Dosage: UNK

REACTIONS (3)
  - Peripheral sensory neuropathy [Unknown]
  - Neutropenia [Unknown]
  - Anaemia [Unknown]

NARRATIVE: CASE EVENT DATE: 20200101
